FAERS Safety Report 16699243 (Version 5)
Quarter: 2020Q3

REPORT INFORMATION
  Report Type: Spontaneous
  Country: US (occurrence: US)
  Receive Date: 20190813
  Receipt Date: 20200803
  Transmission Date: 20201102
  Serious: Yes (Hospitalization, Other)
  Sender: FDA-Public Use
  Company Number: US-PFIZER INC-2019179900

PATIENT
  Age: 76 Year
  Sex: Female
  Weight: 67 kg

DRUGS (6)
  1. TOVIAZ [Suspect]
     Active Substance: FESOTERODINE FUMARATE
     Indication: MICTURITION URGENCY
     Dosage: 4 MG, ONCE A DAY (IN MORNING)
     Dates: start: 2018
  2. LITHIUM. [Concomitant]
     Active Substance: LITHIUM
     Dosage: UNK, 1X/DAY (AT NIGHT)
  3. NITROSTAT [Concomitant]
     Active Substance: NITROGLYCERIN
     Dosage: 0.4 MG, DAILY
     Route: 048
  4. TOVIAZ [Suspect]
     Active Substance: FESOTERODINE FUMARATE
     Indication: URINARY INCONTINENCE
     Dosage: 8 MG, DAILY
     Route: 048
  5. ATIVAN [Concomitant]
     Active Substance: LORAZEPAM
     Dosage: UNK UNK, 1X/DAY (AT NIGHT)
  6. RISPERIDON [Concomitant]
     Active Substance: RISPERIDONE
     Dosage: UNK UNK, 1X/DAY (AT NIGHT)

REACTIONS (6)
  - Mental impairment [Unknown]
  - Pollakiuria [Unknown]
  - Fall [Unknown]
  - Tendon rupture [Unknown]
  - Gait disturbance [Unknown]
  - Confusional state [Unknown]

NARRATIVE: CASE EVENT DATE: 20181128
